FAERS Safety Report 7264935-7 (Version None)
Quarter: 2011Q1

REPORT INFORMATION
  Report Type: 
  Country: None (occurrence: None)
  Receive Date: 20110131
  Receipt Date: 20101228
  Transmission Date: 20110831
  Serious: No
  Sender: FDA-Public Use
  Company Number: US-BAYER-2011-000451

PATIENT
  Sex: Female

DRUGS (1)
  1. MIRENA [Suspect]
     Indication: PRODUCT USED FOR UNKNOWN INDICATION
     Dosage: 20 ?G, CONT

REACTIONS (4)
  - DEVICE DISLOCATION [None]
  - MUSCLE SPASMS [None]
  - MENSTRUATION DELAYED [None]
  - PREGNANCY TEST POSITIVE [None]
